FAERS Safety Report 7635557-0 (Version None)
Quarter: 2011Q3

REPORT INFORMATION
  Report Type: 
  Country: None (occurrence: None)
  Receive Date: 20110726
  Receipt Date: 20110720
  Transmission Date: 20111222
  Serious: Yes (Death)
  Sender: FDA-Public Use
  Company Number: AU-ROXANE LABORATORIES, INC.-2011-RO-01010RO

PATIENT
  Age: 28 Year

DRUGS (8)
  1. CODEINE SULFATE [Suspect]
  2. METHADON AMIDONE HCL TAB [Suspect]
     Indication: DRUG WITHDRAWAL MAINTENANCE THERAPY
  3. DIAZEPAM [Suspect]
  4. ACETAMINOPHEN [Suspect]
  5. CLONAZEPAM [Suspect]
  6. VENLAFAXINE [Suspect]
  7. TEMAZEPAM [Suspect]
  8. NORDIAZEPAM [Suspect]

REACTIONS (4)
  - BRONCHOPNEUMONIA [None]
  - TOXICITY TO VARIOUS AGENTS [None]
  - PULMONARY CONGESTION [None]
  - SNORING [None]
